FAERS Safety Report 11157089 (Version 1)
Quarter: 2015Q2

REPORT INFORMATION
  Report Type: Spontaneous
  Country: PL (occurrence: PL)
  Receive Date: 20150602
  Receipt Date: 20150602
  Transmission Date: 20150821
  Serious: Yes (Other)
  Sender: FDA-Public Use
  Company Number: PL-TEVA-567233ISR

PATIENT
  Sex: Female
  Weight: 100 kg

DRUGS (7)
  1. DIURESIN SR [Concomitant]
     Route: 048
  2. ESCITALOPRAM [Concomitant]
     Active Substance: ESCITALOPRAM OXALATE
     Route: 048
  3. TERTENSIF [Concomitant]
     Route: 048
  4. PERNAZINE [Concomitant]
     Route: 048
  5. LOKREN [Concomitant]
     Active Substance: BETAXOLOL HYDROCHLORIDE
     Route: 048
  6. QUENTAPIL [Concomitant]
  7. GABAPENTIN TEVA [Suspect]
     Active Substance: GABAPENTIN
     Route: 048
     Dates: start: 20130601, end: 20130612

REACTIONS (4)
  - Visual impairment [Recovering/Resolving]
  - Alopecia [Recovering/Resolving]
  - Gingival pain [Recovering/Resolving]
  - Pain in extremity [Recovering/Resolving]
